FAERS Safety Report 13621820 (Version 1)
Quarter: 2017Q2

REPORT INFORMATION
  Report Type: Report from Study
  Country: US (occurrence: US)
  Receive Date: 20170607
  Receipt Date: 20170607
  Transmission Date: 20170830
  Serious: Yes (Other)
  Sender: FDA-Public Use
  Company Number: US-KYOWAKIRIN-2017BKK001484

PATIENT

DRUGS (3)
  1. GRANISETRON [Suspect]
     Active Substance: GRANISETRON
     Indication: PROPHYLAXIS OF NAUSEA AND VOMITING
     Dosage: 8 DF, UNK
     Route: 062
  2. GRANISETRON [Suspect]
     Active Substance: GRANISETRON
     Dosage: 1 DF, UNK
     Route: 062
     Dates: start: 20170522
  3. GRANISETRON [Suspect]
     Active Substance: GRANISETRON
     Dosage: 1 DF, UNK
     Route: 062
     Dates: start: 20170517, end: 20170521

REACTIONS (6)
  - Application site nodule [Unknown]
  - Application site rash [Recovered/Resolved]
  - Pruritus [Recovered/Resolved]
  - Hypersensitivity [Unknown]
  - Administration site papule [Unknown]
  - Wrong technique in product usage process [Unknown]

NARRATIVE: CASE EVENT DATE: 201705
